FAERS Safety Report 5329144-7 (Version None)
Quarter: 2007Q2

REPORT INFORMATION
  Report Type: 
  Country: None (occurrence: None)
  Receive Date: 20070518
  Receipt Date: 20070508
  Transmission Date: 20071010
  Serious: Yes (Other)
  Sender: FDA-Public Use
  Company Number: US-PFIZER INC-2007018298

PATIENT
  Sex: Female
  Weight: 57.2 kg

DRUGS (6)
  1. LYRICA [Suspect]
     Indication: FIBROMYALGIA
     Dates: start: 20060901, end: 20070227
  2. LYRICA [Suspect]
     Indication: PAIN
  3. NEURONTIN [Suspect]
     Dates: start: 19980101, end: 20020101
  4. TYLENOL [Concomitant]
  5. IBUPROFEN [Concomitant]
  6. DIAZEPAM [Concomitant]
     Route: 048

REACTIONS (4)
  - COMA [None]
  - DRUG WITHDRAWAL SYNDROME [None]
  - LIVER DISORDER [None]
  - NEURALGIA [None]
